FAERS Safety Report 24767011 (Version 1)
Quarter: 2024Q4

REPORT INFORMATION
  Report Type: Spontaneous
  Country: US (occurrence: None)
  Receive Date: 20241223
  Receipt Date: 20241223
  Transmission Date: 20250115
  Serious: Yes (Hospitalization, Disabling)
  Sender: Public
  Company Number: None

PATIENT
  Age: 46 Year
  Sex: Female
  Weight: 77.11 kg

DRUGS (5)
  1. KEYTRUDA [Suspect]
     Active Substance: PEMBROLIZUMAB
     Indication: Triple negative breast cancer
     Dosage: OTHER QUANTITY : ADMINISTERED VIA PORT ?OTHER FREQUENCY : 8 TIMES ?OTHER ROUTE : EVERY3WEEKS?
     Route: 050
     Dates: start: 20230922, end: 20240214
  2. INSULIN NOS [Concomitant]
     Active Substance: INSULIN NOS
  3. LEVOTHYROXINE [Concomitant]
     Active Substance: LEVOTHYROXINE
  4. VITAMIN B12 [Concomitant]
     Active Substance: CYANOCOBALAMIN
  5. VITAMIN D [Concomitant]
     Active Substance: VITAMIN D NOS

REACTIONS (1)
  - Type 1 diabetes mellitus [None]

NARRATIVE: CASE EVENT DATE: 20230922
